FAERS Safety Report 7807213-7 (Version None)
Quarter: 2011Q4

REPORT INFORMATION
  Report Type: 
  Country: None (occurrence: None)
  Receive Date: 20111011
  Receipt Date: 20111006
  Transmission Date: 20120403
  Serious: Yes (Other)
  Sender: FDA-Public Use
  Company Number: US-TEVA-304036USA

PATIENT
  Sex: Female

DRUGS (1)
  1. COPAXONE [Suspect]
     Indication: MULTIPLE SCLEROSIS
     Dosage: 20 MILLIGRAM;
     Route: 058

REACTIONS (9)
  - DYSPNOEA [None]
  - IMMEDIATE POST-INJECTION REACTION [None]
  - ABDOMINAL PAIN [None]
  - FALL [None]
  - ANXIETY [None]
  - FEELING HOT [None]
  - HYPOAESTHESIA [None]
  - DIARRHOEA [None]
  - VAGINAL HAEMORRHAGE [None]
